FAERS Safety Report 20334980 (Version 11)
Quarter: 2022Q1

REPORT INFORMATION
  Report Type: Report from Study
  Country: LT (occurrence: None)
  Receive Date: 20220114
  Receipt Date: 20220303
  Transmission Date: 20220423
  Serious: Yes (Life-Threatening, Hospitalization)
  Sender: FDA-Public Use
  Company Number: LT-ROCHE-2998159

PATIENT
  Age: 53 Year
  Sex: Female
  Weight: 67 kg

DRUGS (6)
  1. ATEZOLIZUMAB [Suspect]
     Active Substance: ATEZOLIZUMAB
     Indication: Ovarian cancer recurrent
     Dosage: 04/JAN/2022:LAST DOSE OF ATEZOLIZUMAB PRIOR TO SAE.
     Route: 041
     Dates: start: 20211123, end: 20220211
  2. BEVACIZUMAB [Suspect]
     Active Substance: BEVACIZUMAB
     Indication: Ovarian cancer recurrent
     Dosage: 04/JAN/2022:LAST DOSE OF BEVACIZUMAB PRIOR TO SAE.
     Route: 042
     Dates: start: 20211123, end: 20220211
  3. DOXORUBICIN [Suspect]
     Active Substance: DOXORUBICIN
     Indication: Ovarian cancer recurrent
     Dosage: 21/DEC/2021: DATE OF LAST DOSE OF PLD PRIOR TO SAE.
     Route: 042
     Dates: start: 20211123
  4. DICLOFENAC [Concomitant]
     Active Substance: DICLOFENAC
     Indication: Abdominal pain
     Route: 048
     Dates: start: 20220104, end: 20220104
  5. ACETAMINOPHEN [Concomitant]
     Active Substance: ACETAMINOPHEN
     Indication: Pyrexia
     Route: 048
     Dates: start: 20220105, end: 20220105
  6. PIPERACILLIN SODIUM\TAZOBACTAM SODIUM [Concomitant]
     Active Substance: PIPERACILLIN SODIUM\TAZOBACTAM SODIUM

REACTIONS (5)
  - Intestinal obstruction [Recovered/Resolved with Sequelae]
  - Intestinal perforation [Recovered/Resolved]
  - Sepsis [Recovered/Resolved]
  - Peritonitis [Recovered/Resolved]
  - Hydrothorax [Recovered/Resolved]

NARRATIVE: CASE EVENT DATE: 20220106
